FAERS Safety Report 4784578-4 (Version None)
Quarter: 2005Q3

REPORT INFORMATION
  Report Type: 
  Country: None (occurrence: None)
  Receive Date: 20050929
  Receipt Date: 20050929
  Transmission Date: 20060218
  Serious: Yes (Hospitalization)
  Sender: FDA-Public Use
  Company Number: None

PATIENT
  Age: 66 Year
  Sex: Male
  Weight: 95.7 kg

DRUGS (15)
  1. ZOCOR [Suspect]
     Indication: HYPERLIPIDAEMIA
     Dosage: 40MG,40MG QD, ORAL
     Route: 048
  2. MONTELUKAST NA [Concomitant]
  3. METFORMIN HCL [Concomitant]
  4. OMEPRAZOLE [Concomitant]
  5. ROSIGLITAZONE MALEATE [Concomitant]
  6. PAROXETINE HCL [Concomitant]
  7. IRBESARTAN [Concomitant]
  8. TRIAMCINOLONE [Concomitant]
  9. SIMETHICONE [Concomitant]
  10. FLUTICASONE PROP [Concomitant]
  11. SALMETEROL 50MCG/BLSTR PO INHL DISKUS 60 [Concomitant]
  12. SIMVASTATIN [Concomitant]
  13. ALBUTEROL SO4 [Concomitant]
  14. ACETAMINOPHEN [Concomitant]
  15. NITROGLYCERIN [Concomitant]

REACTIONS (1)
  - RHABDOMYOLYSIS [None]
